FAERS Safety Report 8926897 (Version 1)
Quarter: 2012Q4

REPORT INFORMATION
  Report Type: 
  Country: CH (occurrence: CH)
  Receive Date: 20121127
  Receipt Date: 20121127
  Transmission Date: 20130627
  Serious: Yes (Hospitalization)
  Sender: FDA-Public Use
  Company Number: CH-JNJFOC-20121110434

PATIENT
  Age: 80 Year
  Sex: Male

DRUGS (2)
  1. ZYTIGA [Suspect]
     Indication: PROSTATE CANCER
     Dosage: since approximately 18 months ago
     Route: 048
  2. PREDNISOLONE [Concomitant]
     Indication: PROSTATE CANCER
     Route: 065

REACTIONS (1)
  - Osteonecrosis [Recovered/Resolved]
